FAERS Safety Report 5625500-8 (Version None)
Quarter: 2008Q1

REPORT INFORMATION
  Report Type: 
  Country: None (occurrence: None)
  Receive Date: 20080207
  Receipt Date: 20080128
  Transmission Date: 20080703
  Serious: Yes (Other)
  Sender: FDA-Public Use
  Company Number: WAES 0710USA03279

PATIENT
  Age: 70 Year
  Sex: Female

DRUGS (6)
  1. ZETIA [Suspect]
     Indication: HYPERCHOLESTEROLAEMIA
     Dosage: 10 MG/DAILY PO
     Route: 048
     Dates: start: 20070911, end: 20071009
  2. ADEFURONIC (DICLOFENAC NA) [Suspect]
     Indication: PROPHYLAXIS
     Dosage: PO
     Route: 048
     Dates: end: 20071009
  3. CEFACLOR [Suspect]
     Indication: PROPHYLAXIS
     Dosage: PO
     Route: 048
     Dates: end: 20071009
  4. LEVOTHYROXINE SODIUM [Concomitant]
  5. LYSOZYME CHLORIDE [Concomitant]
  6. RABEPRAZOLE SODIUM [Concomitant]

REACTIONS (4)
  - ALANINE AMINOTRANSFERASE INCREASED [None]
  - ASPARTATE AMINOTRANSFERASE INCREASED [None]
  - GAMMA-GLUTAMYLTRANSFERASE INCREASED [None]
  - LIVER DISORDER [None]
